APPROVED DRUG PRODUCT: CARNITOR
Active Ingredient: LEVOCARNITINE
Strength: 200MG/ML
Dosage Form/Route: INJECTABLE;INJECTION
Application: N020182 | Product #001 | TE Code: AP
Applicant: LEADIANT BIOSCIENCES INC
Approved: Dec 16, 1992 | RLD: Yes | RS: Yes | Type: RX